FAERS Safety Report 22156787 (Version 2)
Quarter: 2023Q2

REPORT INFORMATION
  Report Type: Spontaneous
  Country: US (occurrence: US)
  Receive Date: 20230330
  Receipt Date: 20230525
  Transmission Date: 20230722
  Serious: Yes (Hospitalization)
  Sender: FDA-Public Use
  Company Number: US-PFIZER INC-PV202300045993

PATIENT
  Age: 44 Year
  Sex: Male

DRUGS (1)
  1. RETACRIT [Suspect]
     Active Substance: EPOETIN ALFA-EPBX
     Dosage: 10000 IU/ML, CYCLIC (EVERY 14 DAYS)

REACTIONS (3)
  - Diabetes mellitus [Unknown]
  - Renal disorder [Unknown]
  - Off label use [Unknown]
